FAERS Safety Report 10373770 (Version 2)
Quarter: 2014Q3

REPORT INFORMATION
  Report Type: Spontaneous
  Country: US (occurrence: US)
  Receive Date: 20140809
  Receipt Date: 20140822
  Transmission Date: 20150326
  Serious: No
  Sender: FDA-Public Use
  Company Number: US-009507513-1408USA005112

PATIENT
  Age: 18 Year
  Sex: Female
  Weight: 87.75 kg

DRUGS (2)
  1. IMPLANON [Concomitant]
     Active Substance: ETONOGESTREL
     Dosage: UNK
     Route: 059
  2. NEXPLANON [Suspect]
     Active Substance: ETONOGESTREL
     Indication: CONTRACEPTION
     Dosage: 68 MG, RIGHT ARM
     Route: 059
     Dates: start: 20140619, end: 20140808

REACTIONS (5)
  - Tenderness [Recovered/Resolved]
  - Implant site bruising [Unknown]
  - Device kink [Recovered/Resolved]
  - Implant site pain [Recovered/Resolved]
  - Paraesthesia [Recovered/Resolved]

NARRATIVE: CASE EVENT DATE: 2014
